FAERS Safety Report 23684811 (Version 4)
Quarter: 2024Q2

REPORT INFORMATION
  Report Type: Spontaneous
  Country: IT (occurrence: IT)
  Receive Date: 20240328
  Receipt Date: 20240408
  Transmission Date: 20240716
  Serious: Yes (Hospitalization)
  Sender: FDA-Public Use
  Company Number: None

PATIENT
  Age: 70 Year
  Sex: Female

DRUGS (1)
  1. DICLOFENAC SODIUM [Suspect]
     Active Substance: DICLOFENAC\DICLOFENAC SODIUM
     Indication: Inflammation
     Dosage: 1 DOSAGE FORM (1 FL TOTALE)
     Route: 042
     Dates: start: 20240131, end: 20240131

REACTIONS (5)
  - Localised oedema [Recovered/Resolved]
  - Flushing [Recovered/Resolved]
  - Macroglossia [Recovered/Resolved]
  - Medication error [Recovered/Resolved]
  - Intentional product misuse [Recovered/Resolved]

NARRATIVE: CASE EVENT DATE: 20240131
